FAERS Safety Report 5486568-5 (Version None)
Quarter: 2007Q4

REPORT INFORMATION
  Report Type: 
  Country: None (occurrence: None)
  Receive Date: 20071016
  Receipt Date: 20071010
  Transmission Date: 20080405
  Serious: Yes (Other)
  Sender: FDA-Public Use
  Company Number: US-BRISTOL-MYERS SQUIBB COMPANY-13937289

PATIENT

DRUGS (1)
  1. AVAPRO [Suspect]
     Indication: CARDIOVASCULAR DISORDER

REACTIONS (1)
  - PULMONARY FIBROSIS [None]
